FAERS Safety Report 14576849 (Version 1)
Quarter: 2018Q1

REPORT INFORMATION
  Report Type: Spontaneous
  Country: US (occurrence: US)
  Receive Date: 20180225
  Receipt Date: 20180225
  Transmission Date: 20180509
  Serious: Yes (Other)
  Sender: FDA-Public Use
  Company Number: None

PATIENT
  Age: 37 Year
  Sex: Male
  Weight: 94.5 kg

DRUGS (4)
  1. NEOMYCIN. [Suspect]
     Active Substance: NEOMYCIN
     Indication: GASTRITIS BACTERIAL
     Dosage: ?          QUANTITY:1 TABLET(S);?
     Route: 048
  2. GINKO BILOBA [Concomitant]
     Active Substance: GINKGO
  3. VITAMIN D3 [Concomitant]
     Active Substance: CHOLECALCIFEROL
  4. VITAMIN B12 [Concomitant]
     Active Substance: CYANOCOBALAMIN

REACTIONS (1)
  - Tinnitus [None]

NARRATIVE: CASE EVENT DATE: 20180220
